FAERS Safety Report 6299886-8 (Version None)
Quarter: 2009Q3

REPORT INFORMATION
  Report Type: 
  Country: None (occurrence: None)
  Receive Date: 20090806
  Receipt Date: 20090724
  Transmission Date: 20100115
  Serious: Yes (Other)
  Sender: FDA-Public Use
  Company Number: PHHY2009CA21242

PATIENT
  Sex: Male

DRUGS (1)
  1. ZOMETA [Suspect]
     Indication: PROSTATE CANCER
     Dosage: 4 MG EVERY 4 WEEKS
     Route: 042
     Dates: start: 20090429

REACTIONS (4)
  - BACK PAIN [None]
  - BLOOD PRESSURE DIASTOLIC DECREASED [None]
  - DECREASED APPETITE [None]
  - PROSTATIC SPECIFIC ANTIGEN INCREASED [None]
